FAERS Safety Report 11226417 (Version 1)
Quarter: 2015Q2

REPORT INFORMATION
  Report Type: Report from Study
  Country: BR (occurrence: BR)
  Receive Date: 20150629
  Receipt Date: 20150629
  Transmission Date: 20150821
  Serious: Yes (Hospitalization, Other)
  Sender: FDA-Public Use
  Company Number: PHHY2015BR074404

PATIENT
  Age: 60 Year
  Sex: Female
  Weight: 46 kg

DRUGS (12)
  1. EXELON PATCH [Suspect]
     Active Substance: RIVASTIGMINE
     Indication: DEMENTIA ALZHEIMER^S TYPE
     Dosage: PATCH 10 (CM2), EACH 24 HOURS
     Route: 062
  2. OLANZAPINE. [Suspect]
     Active Substance: OLANZAPINE
     Indication: PHOBIA
     Dosage: 2 TABLETS, QD
     Route: 065
  3. OLANZAPINE. [Suspect]
     Active Substance: OLANZAPINE
     Indication: SEDATION
  4. MIRTAZAPINE. [Suspect]
     Active Substance: MIRTAZAPINE
     Indication: INSOMNIA
     Dosage: 1 TABLET, QD
     Route: 065
     Dates: start: 201411
  5. STILNOX [Suspect]
     Active Substance: ZOLPIDEM TARTRATE
     Indication: INSOMNIA
     Dosage: 1 TABLET, QD
     Route: 065
     Dates: start: 201411
  6. ESCITALOPRAM [Suspect]
     Active Substance: ESCITALOPRAM OXALATE
     Dosage: 2 TABLETS, QD
     Route: 065
  7. EXELON PATCH [Suspect]
     Active Substance: RIVASTIGMINE
     Dosage: PATCH 10 (CM2), EACH 24 HOURS
     Route: 062
  8. OLANZAPINE. [Suspect]
     Active Substance: OLANZAPINE
     Indication: FEAR
     Dosage: 2 TABLETS, QD
     Route: 065
  9. ESCITALOPRAM [Suspect]
     Active Substance: ESCITALOPRAM OXALATE
     Indication: SEDATION
     Dosage: 2 TABLETS, QD
     Route: 065
  10. MIRTAZAPINE. [Suspect]
     Active Substance: MIRTAZAPINE
     Dosage: 1 TABLET, QD
     Route: 065
  11. DEPAKENE [Suspect]
     Active Substance: VALPROIC ACID
     Indication: PRODUCT USED FOR UNKNOWN INDICATION
     Dosage: 2 TABLETS, QD
     Route: 065
     Dates: start: 201503
  12. STILNOX [Suspect]
     Active Substance: ZOLPIDEM TARTRATE
     Dosage: 1 TABLET, QD
     Route: 065

REACTIONS (6)
  - Pyrexia [Recovered/Resolved]
  - Pyrexia [Recovering/Resolving]
  - Hallucination [Recovered/Resolved]
  - Viral infection [Recovering/Resolving]
  - Irritability [Recovered/Resolved]
  - Aggression [Recovered/Resolved]
